FAERS Safety Report 24827613 (Version 3)
Quarter: 2025Q1

REPORT INFORMATION
  Report Type: Report from Study
  Country: US (occurrence: US)
  Receive Date: 20250109
  Receipt Date: 20250203
  Transmission Date: 20250409
  Serious: Yes (Hospitalization)
  Sender: ALNYLAM PHARMACEUTICALS
  Company Number: US-ALNYLAM PHARMACEUTICALS, INC.-ALN-2024-007223

PATIENT

DRUGS (3)
  1. GIVLAARI [Suspect]
     Active Substance: GIVOSIRAN SODIUM
     Indication: Porphyria acute
     Route: 065
     Dates: start: 20221227, end: 20221227
  2. BOTOX [Suspect]
     Active Substance: ONABOTULINUMTOXINA
     Indication: Product used for unknown indication
     Route: 065
  3. HEMATIN [Concomitant]
     Active Substance: HEMATIN
     Indication: Product used for unknown indication
     Route: 065

REACTIONS (5)
  - Porphyria acute [Not Recovered/Not Resolved]
  - Intentional dose omission [Unknown]
  - Illness [Unknown]
  - Unevaluable event [Unknown]
  - Fatigue [Unknown]

NARRATIVE: CASE EVENT DATE: 20241218
